FAERS Safety Report 16262013 (Version 15)
Quarter: 2025Q1

REPORT INFORMATION
  Report Type: Report from Study
  Country: US (occurrence: US)
  Receive Date: 20190501
  Receipt Date: 20250213
  Transmission Date: 20250408
  Serious: Yes (Hospitalization, Other)
  Sender: TAKEDA
  Company Number: US-SHIRE-US201913454

PATIENT
  Age: 0 Year
  Sex: Male
  Weight: 20 kg

DRUGS (29)
  1. VELAGLUCERASE ALFA [Suspect]
     Active Substance: VELAGLUCERASE ALFA
     Indication: Gaucher^s disease
     Dosage: UNK UNK, 1/WEEK
     Dates: start: 20180802
  2. VELAGLUCERASE ALFA [Suspect]
     Active Substance: VELAGLUCERASE ALFA
     Dosage: 1200 INTERNATIONAL UNIT, 1/WEEK
     Dates: start: 20231013
  3. VELAGLUCERASE ALFA [Suspect]
     Active Substance: VELAGLUCERASE ALFA
     Dosage: 1200 INTERNATIONAL UNIT, 1/WEEK
  4. SODIUM CHLORIDE [Concomitant]
     Active Substance: SODIUM CHLORIDE
  5. STERILE WATER [Concomitant]
     Active Substance: WATER
  6. EPINEPHRINE [Concomitant]
     Active Substance: EPINEPHRINE
  7. CLONAZEPAM [Concomitant]
     Active Substance: CLONAZEPAM
  8. VALPROIC ACID [Concomitant]
     Active Substance: VALPROIC ACID
  9. ACETYLCYSTEINE [Concomitant]
     Active Substance: ACETYLCYSTEINE
  10. BACLOFEN [Concomitant]
     Active Substance: BACLOFEN
  11. ONFI [Concomitant]
     Active Substance: CLOBAZAM
  12. HEPARIN [Concomitant]
     Active Substance: HEPARIN SODIUM
  13. VALIUM [Concomitant]
     Active Substance: DIAZEPAM
  14. SODIUM CHLORIDE [Concomitant]
     Active Substance: SODIUM CHLORIDE
  15. FYCOMPA [Concomitant]
     Active Substance: PERAMPANEL
  16. OMEPRAZOLE [Concomitant]
     Active Substance: OMEPRAZOLE
  17. LEVOCARNITINE [Concomitant]
     Active Substance: LEVOCARNITINE
  18. TOBRAMYCIN [Concomitant]
     Active Substance: TOBRAMYCIN
  19. FLONASE ALLERGY RELIEF [Concomitant]
     Active Substance: FLUTICASONE PROPIONATE
  20. VENTOLIN HFA [Concomitant]
     Active Substance: ALBUTEROL SULFATE
  21. SYMBICORT [Concomitant]
     Active Substance: BUDESONIDE\FORMOTEROL FUMARATE DIHYDRATE
  22. ALBUTEROL SULFATE [Concomitant]
     Active Substance: ALBUTEROL SULFATE
  23. AMANTADINE [Concomitant]
     Active Substance: AMANTADINE
  24. GABAPENTIN [Concomitant]
     Active Substance: GABAPENTIN
  25. MAGNESIUM [Concomitant]
     Active Substance: MAGNESIUM
  26. CLARITIN [Concomitant]
     Active Substance: LORATADINE
  27. Ironup [Concomitant]
  28. COLCHICINE [Concomitant]
     Active Substance: COLCHICINE
  29. SENNA [Concomitant]
     Active Substance: SENNOSIDES

REACTIONS (12)
  - Pneumonia [Recovering/Resolving]
  - Acute respiratory distress syndrome [Recovering/Resolving]
  - Rhinovirus infection [Recovering/Resolving]
  - Enterovirus infection [Recovering/Resolving]
  - Seizure [Unknown]
  - Vascular device infection [Unknown]
  - Respiratory disorder [Unknown]
  - COVID-19 [Unknown]
  - Pyrexia [Unknown]
  - Nasopharyngitis [Unknown]
  - Weight decreased [Unknown]
  - Off label use [Unknown]

NARRATIVE: CASE EVENT DATE: 20180802
